FAERS Safety Report 24039266 (Version 3)
Quarter: 2025Q1

REPORT INFORMATION
  Report Type: Report from Study
  Country: CA (occurrence: CA)
  Receive Date: 20240702
  Receipt Date: 20250214
  Transmission Date: 20250408
  Serious: Yes (Hospitalization, Other)
  Sender: SANDOZ
  Company Number: CA-SANDOZ-SDZ2024CA061078

PATIENT
  Sex: Female

DRUGS (2)
  1. HYRIMOZ [Suspect]
     Active Substance: ADALIMUMAB-ADAZ
     Indication: Crohn^s disease
     Route: 058
     Dates: start: 20240222
  2. HYRIMOZ [Suspect]
     Active Substance: ADALIMUMAB-ADAZ
     Dosage: 40 MG, Q2W
     Route: 058

REACTIONS (13)
  - Renal disorder [Unknown]
  - Oral mucosal blistering [Unknown]
  - Crohn^s disease [Recovering/Resolving]
  - Encephalitis [Unknown]
  - Blister infected [Unknown]
  - Eye infection [Recovered/Resolved]
  - Fear of injection [Unknown]
  - Anxiety [Unknown]
  - Weight increased [Unknown]
  - Localised infection [Unknown]
  - Injection site pain [Unknown]
  - Drug ineffective [Unknown]
  - Product use issue [Unknown]

NARRATIVE: CASE EVENT DATE: 20240101
